FAERS Safety Report 6969137-7 (Version None)
Quarter: 2010Q3

REPORT INFORMATION
  Report Type: 
  Country: None (occurrence: None)
  Receive Date: 20100907
  Receipt Date: 20100715
  Transmission Date: 20110219
  Serious: No
  Sender: FDA-Public Use
  Company Number: US-TYCO HEALTHCARE/MALLINCKRODT-T201001638

PATIENT
  Sex: Male

DRUGS (8)
  1. EXALGO [Suspect]
     Dosage: 72 MG, QD
     Dates: start: 20100701, end: 20100701
  2. EXALGO [Suspect]
     Dosage: DOSE DECREASED FROM 72 MG TO STOPPING MED
     Dates: start: 20100702, end: 20100714
  3. TOPROL-XL [Concomitant]
     Indication: HYPERTENSION
     Dosage: 50 MG, BID
     Route: 048
  4. PLAVIX [Concomitant]
     Indication: CORONARY ARTERY BYPASS
     Dosage: 75 MG, QD
     Route: 048
  5. COUMADIN [Concomitant]
     Indication: CORONARY ARTERY BYPASS
     Dosage: 1.5 MG, QD
     Route: 048
  6. VALIUM [Concomitant]
     Indication: MUSCLE SPASMS
     Dosage: 5 MG, TID
     Route: 048
  7. HYDROCODONE BITARTRATE AND ACETAMINOPHEN [Concomitant]
     Indication: PAIN
     Dosage: 2 TABS Q4
     Route: 048
     Dates: end: 20100701
  8. OPANA [Concomitant]
     Indication: PAIN
     Dosage: 80 MG, QD
     Route: 048
     Dates: end: 20100701

REACTIONS (5)
  - ABDOMINAL DISCOMFORT [None]
  - DECREASED APPETITE [None]
  - DIARRHOEA [None]
  - HYPERHIDROSIS [None]
  - URINE OUTPUT DECREASED [None]
